FAERS Safety Report 7426809-8 (Version None)
Quarter: 2011Q2

REPORT INFORMATION
  Report Type: 
  Country: None (occurrence: None)
  Receive Date: 20110420
  Receipt Date: 20110415
  Transmission Date: 20111010
  Serious: Yes (Disabling)
  Sender: FDA-Public Use
  Company Number: GB-MERCK-1103GBR00078

PATIENT
  Age: 57 Year
  Sex: Male

DRUGS (2)
  1. PROPECIA [Suspect]
     Indication: ANDROGENETIC ALOPECIA
     Route: 048
     Dates: start: 20080422, end: 20101001
  2. MINOXIDIL [Concomitant]
     Route: 061
     Dates: start: 20090901

REACTIONS (4)
  - ERECTILE DYSFUNCTION [None]
  - PROSTATOMEGALY [None]
  - LOSS OF LIBIDO [None]
  - PROSTATIC SPECIFIC ANTIGEN INCREASED [None]
